FAERS Safety Report 11219465 (Version 1)
Quarter: 2015Q2

REPORT INFORMATION
  Report Type: Spontaneous
  Country: US (occurrence: US)
  Receive Date: 20150625
  Receipt Date: 20150625
  Transmission Date: 20150821
  Serious: No
  Sender: FDA-Public Use
  Company Number: US-TARO-2015TAR00161

PATIENT
  Sex: Female
  Weight: 104.31 kg

DRUGS (3)
  1. CLOBETASOL PROPIONATE GEL 0.05% [Suspect]
     Active Substance: CLOBETASOL PROPIONATE
     Indication: PRURITUS
  2. CLOBETASOL PROPIONATE GEL 0.05% [Suspect]
     Active Substance: CLOBETASOL PROPIONATE
     Indication: SWELLING
     Route: 061
  3. UNKNOWN MEDICATION [Concomitant]
     Active Substance: UNSPECIFIED INGREDIENT

REACTIONS (4)
  - Drug ineffective [Not Recovered/Not Resolved]
  - Pruritus [Not Recovered/Not Resolved]
  - Application site pain [Not Recovered/Not Resolved]
  - Alopecia [Not Recovered/Not Resolved]
